FAERS Safety Report 5109771-2 (Version None)
Quarter: 2006Q3

REPORT INFORMATION
  Report Type: 
  Country: None (occurrence: None)
  Receive Date: 20060915
  Receipt Date: 20060905
  Transmission Date: 20061208
  Serious: Yes (Hospitalization)
  Sender: FDA-Public Use
  Company Number: 2006107578

PATIENT
  Age: 69 Year
  Sex: Male

DRUGS (7)
  1. MINIPRESS [Suspect]
     Indication: HYPERTENSION
     Dosage: 2 MG (1 MG, 2 IN 1 D), ORAL
     Route: 048
  2. HERBAL PREPARATION (HERBAL PREPARATION) [Suspect]
     Indication: SLEEP DISORDER
     Dates: start: 20060903, end: 20060903
  3. DURIDE (ISOSORBIDE MONONITRATE) [Concomitant]
  4. DIGOXIN [Concomitant]
  5. AVAPRO HCT (HYDROCHLOROTHIAZIDE, IRBESARTAN) [Concomitant]
  6. RANI 2 (RANITIDINE HYDROCHLORIDE) [Concomitant]
  7. VASOCARDOL (DILTIAZEM HYDROCHLORIDE) [Concomitant]

REACTIONS (1)
  - BLOOD PRESSURE INCREASED [None]
